FAERS Safety Report 19228189 (Version 4)
Quarter: 2022Q4

REPORT INFORMATION
  Report Type: Spontaneous
  Country: CA (occurrence: CA)
  Receive Date: 20210506
  Receipt Date: 20221007
  Transmission Date: 20230113
  Serious: Yes (Death, Other)
  Sender: FDA-Public Use
  Company Number: CA-002147023-NVSC2021CA090632

PATIENT

DRUGS (223)
  1. DICLOFENAC SODIUM [Suspect]
     Active Substance: DICLOFENAC SODIUM
     Indication: Foetal exposure during pregnancy
     Dosage: MATERNAL DOSE: 50MG, QW
     Route: 064
  2. DICLOFENAC [Suspect]
     Active Substance: DICLOFENAC
     Indication: Foetal exposure during pregnancy
     Dosage: MATERNAL DOSE: UNKNOWN
     Route: 065
  3. DICLOFENAC [Suspect]
     Active Substance: DICLOFENAC
     Dosage: MATERNAL DOSE: 50.0 MILLIGRAM
     Route: 065
  4. DICLOFENAC [Suspect]
     Active Substance: DICLOFENAC
     Dosage: MATERNAL DOSE: UNKNOWN
     Route: 064
  5. DICLOFENAC [Suspect]
     Active Substance: DICLOFENAC
     Dosage: MATERNAL DOSE: UNKNOWN
     Route: 064
  6. ACETAMINOPHEN [Suspect]
     Active Substance: ACETAMINOPHEN
     Indication: Foetal exposure during pregnancy
     Dosage: UNK (MATERNAL DOSE: UNKNOWN)
     Route: 064
  7. ACETAMINOPHEN [Suspect]
     Active Substance: ACETAMINOPHEN
     Dosage: MATERNAL DOSE: UNKNOWN
     Route: 064
  8. ACETAMINOPHEN [Suspect]
     Active Substance: ACETAMINOPHEN
     Dosage: MATERNAL DOSE: UNKNOWN
     Route: 064
  9. PSEUDOEPHEDRINE HYDROCHLORIDE [Suspect]
     Active Substance: PSEUDOEPHEDRINE HYDROCHLORIDE
     Indication: Foetal exposure during pregnancy
     Dosage: UNK (MATERNAL DOSE: UNKNOWN)
     Route: 064
  10. PSEUDOEPHEDRINE HYDROCHLORIDE [Suspect]
     Active Substance: PSEUDOEPHEDRINE HYDROCHLORIDE
     Dosage: MATERNAL DOSE: UNKNOWN
     Route: 064
  11. PSEUDOEPHEDRINE HYDROCHLORIDE [Suspect]
     Active Substance: PSEUDOEPHEDRINE HYDROCHLORIDE
     Dosage: MATERNAL DOSE: UNKNOWN
     Route: 064
  12. CALCIUM CARBONATE [Suspect]
     Active Substance: CALCIUM CARBONATE
     Indication: Foetal exposure during pregnancy
     Dosage: MATERNAL DOSE: UNKNOWN
     Route: 064
  13. CALCIUM [Suspect]
     Active Substance: CALCIUM
     Indication: Foetal exposure during pregnancy
     Dosage: MATERNAL DOSE: UNKNOWN
     Route: 064
  14. CALCIUM [Suspect]
     Active Substance: CALCIUM
     Dosage: MATERNAL DOSE: UNKNOWN
     Route: 064
  15. DIPHENHYDRAMINE HYDROCHLORIDE [Suspect]
     Active Substance: DIPHENHYDRAMINE HYDROCHLORIDE
     Indication: Foetal exposure during pregnancy
     Dosage: MATERNAL DOSE: 50.0 MG
     Route: 064
  16. DIPHENHYDRAMINE HYDROCHLORIDE [Suspect]
     Active Substance: DIPHENHYDRAMINE HYDROCHLORIDE
     Dosage: MATERNAL DOSE: UNKNOWN
     Route: 064
  17. CETIRIZINE HYDROCHLORIDE [Suspect]
     Active Substance: CETIRIZINE HYDROCHLORIDE
     Indication: Foetal exposure during pregnancy
     Dosage: MATERNAL DOSE: UNKNOWN
     Route: 064
  18. CETIRIZINE HYDROCHLORIDE [Suspect]
     Active Substance: CETIRIZINE HYDROCHLORIDE
     Dosage: MATERNAL DOSE: 10.0 MILLIGRAM
     Route: 064
  19. CETIRIZINE HYDROCHLORIDE [Suspect]
     Active Substance: CETIRIZINE HYDROCHLORIDE
     Dosage: MATERNAL DOSE: UNKNOWN
     Route: 064
  20. CETIRIZINE HYDROCHLORIDE [Suspect]
     Active Substance: CETIRIZINE HYDROCHLORIDE
     Dosage: MATERNAL DOSE: UNKNOWN
     Route: 064
  21. CETIRIZINE HYDROCHLORIDE [Suspect]
     Active Substance: CETIRIZINE HYDROCHLORIDE
     Dosage: MATERNAL DOSE: 10.0 MILLIGRAM
     Route: 064
  22. HYDROCORTISONE ACETATE [Suspect]
     Active Substance: HYDROCORTISONE ACETATE
     Indication: Foetal exposure during pregnancy
     Dosage: MATERNAL DOSE: UNKNOWN
     Route: 064
  23. HYDROCORTISONE ACETATE [Suspect]
     Active Substance: HYDROCORTISONE ACETATE
     Dosage: MATERNAL DOSE: UNKNOWN
     Route: 064
  24. ERELZI [Suspect]
     Active Substance: ETANERCEPT-SZZS
     Indication: Foetal exposure during pregnancy
     Dosage: UNK (MATERNAL DOSE: UNKNOWN)
     Route: 064
  25. COSENTYX [Suspect]
     Active Substance: SECUKINUMAB
     Indication: Foetal exposure during pregnancy
     Dosage: MATERNAL DOSE: UNKNOWN
     Route: 064
  26. ALENDRONIC ACID [Suspect]
     Active Substance: ALENDRONIC ACID
     Indication: Foetal exposure during pregnancy
     Dosage: MATERNAL DOSE: UNKNOWN (ALENDRONIC SODIUM)
     Route: 064
  27. DESOXIMETASONE [Suspect]
     Active Substance: DESOXIMETASONE
     Indication: Foetal exposure during pregnancy
     Dosage: UNK (MATERNAL DOSE: UNKNOWN)
     Route: 064
  28. DESOXIMETASONE [Suspect]
     Active Substance: DESOXIMETASONE
     Dosage: UNK (MATERNAL DOSE: UNKNOWN)
     Route: 064
  29. DESOXIMETASONE [Suspect]
     Active Substance: DESOXIMETASONE
     Dosage: UNK (MATERNAL DOSE: UNKNOWN)
     Route: 064
  30. DESOXIMETASONE [Suspect]
     Active Substance: DESOXIMETASONE
     Dosage: UNK (MATERNAL DOSE: UNKNOWN)
     Route: 064
  31. DESOXIMETASONE [Suspect]
     Active Substance: DESOXIMETASONE
     Dosage: MATERNAL DOSE: UNKNOWN
     Route: 064
  32. DESOXIMETASONE [Suspect]
     Active Substance: DESOXIMETASONE
     Dosage: MATERNAL DOSE: UNKNOWN
     Route: 064
  33. DESOXIMETASONE [Suspect]
     Active Substance: DESOXIMETASONE
     Dosage: MATERNAL DOSE: UNKNOWN
     Route: 064
  34. DESOXIMETASONE [Suspect]
     Active Substance: DESOXIMETASONE
     Dosage: MATERNAL DOSE: UNKNOWN
     Route: 064
  35. DESOXIMETASONE [Suspect]
     Active Substance: DESOXIMETASONE
     Dosage: MATERNAL DOSE: UNKNOWN
     Route: 064
  36. ACTEMRA [Suspect]
     Active Substance: TOCILIZUMAB
     Indication: Foetal exposure during pregnancy
     Dosage: UNK (MATERNAL DOSE: UNKNOWN)
     Route: 064
  37. ACTEMRA [Suspect]
     Active Substance: TOCILIZUMAB
     Dosage: (MATERNAL DOSE: UNKNOWN)UNK
     Route: 064
  38. PREDNISONE [Suspect]
     Active Substance: PREDNISONE
     Indication: Foetal exposure during pregnancy
     Dosage: UNK (MATERNAL DOSE: 40.0 MILLIGRAM)
     Route: 064
  39. PREDNISONE [Suspect]
     Active Substance: PREDNISONE
     Dosage: MATERNAL DOSE: 40.0 MILLIGRAM
     Route: 064
  40. PREDNISONE [Suspect]
     Active Substance: PREDNISONE
     Dosage: MATERNAL DOSE: UNKNOWN
     Route: 064
  41. ARAVA [Suspect]
     Active Substance: LEFLUNOMIDE
     Indication: Foetal exposure during pregnancy
     Dosage: UNK (MATERNAL DOSE: 20.0 MILLIGRAM)
     Route: 064
  42. ARAVA [Suspect]
     Active Substance: LEFLUNOMIDE
     Dosage: UNK (MATERNAL DOSE: MATERNAL DOSE: UNKNOWN)
     Route: 064
  43. ARAVA [Suspect]
     Active Substance: LEFLUNOMIDE
     Dosage: MATERNAL DOSE: 20.0 MILLIGRAM
     Route: 064
  44. ADALIMUMAB [Suspect]
     Active Substance: ADALIMUMAB
     Indication: Foetal exposure during pregnancy
     Dosage: UNK (MATERNAL DOSE: 40.0 MILLIGRAM)
     Route: 064
  45. ADALIMUMAB [Suspect]
     Active Substance: ADALIMUMAB
     Dosage: MATERNAL DOSE: 40.0 MILLIGRAM
     Route: 064
  46. CETIRIZINE HYDROCHLORIDE\PSEUDOEPHEDRINE HYDROCHLORIDE [Suspect]
     Active Substance: CETIRIZINE HYDROCHLORIDE\PSEUDOEPHEDRINE HYDROCHLORIDE
     Indication: Foetal exposure during pregnancy
     Dosage: MATERNAL DOSE: UNKNOWN
     Route: 064
  47. CIMZIA [Suspect]
     Active Substance: CERTOLIZUMAB PEGOL
     Indication: Foetal exposure during pregnancy
     Dosage: MATERNAL DOSE:  (MATERNAL DOSE: UNKNOWN,  SOLUTION FOR INJECTION IN PRE-FILLED SYRINGE)
     Route: 064
  48. CIMZIA [Suspect]
     Active Substance: CERTOLIZUMAB PEGOL
     Dosage: MATERNAL DOSE: UNKNOWN,  SOLUTION FOR INJECTION IN PRE-FILLED SYRINGE
     Route: 064
  49. CIMZIA [Suspect]
     Active Substance: CERTOLIZUMAB PEGOL
     Dosage: MATERNAL DOSE: 400 MG (MATERNAL DOSE: UNKNOWN,  SOLUTION FOR INJECTION IN PRE-FILLED SYRINGE)
     Route: 064
  50. CIMZIA [Suspect]
     Active Substance: CERTOLIZUMAB PEGOL
     Dosage: MATERNAL DOSE: 400 MG (MATERNAL DOSE: UNKNOWN,  SOLUTION FOR INJECTION IN PRE-FILLED SYRINGE)
     Route: 064
  51. CIMZIA [Suspect]
     Active Substance: CERTOLIZUMAB PEGOL
     Dosage: MATERNAL DOSE: UNKNOWN,  SOLUTION FOR INJECTION)
     Route: 064
  52. CIMZIA [Suspect]
     Active Substance: CERTOLIZUMAB PEGOL
     Dosage: MATERNAL DOSE: 400 MG,  SOLUTION FOR INJECTION IN PRE-FILLED SYRINGE)
     Route: 064
  53. CIMZIA [Suspect]
     Active Substance: CERTOLIZUMAB PEGOL
     Dosage: MATERNAL DOSE: UNKNOWN,  SOLUTION FOR INJECTION IN PRE-FILLED SYRINGE
     Route: 064
  54. FOLIC ACID [Suspect]
     Active Substance: FOLIC ACID
     Indication: Foetal exposure during pregnancy
     Dosage: MATERNAL DOSE: 1.0 MILLIGRAM
     Route: 064
  55. FOLIC ACID [Suspect]
     Active Substance: FOLIC ACID
     Dosage: MATERNAL DOSE: UNKNOWN
     Route: 064
  56. FOLIC ACID [Suspect]
     Active Substance: FOLIC ACID
     Dosage: MATERNAL DOSE: 5.0 MILLIGRAM
     Route: 064
  57. FOLIC ACID [Suspect]
     Active Substance: FOLIC ACID
     Dosage: MATERNAL DOSE: 1.0 MILLIGRAM
     Route: 064
  58. FOLIC ACID [Suspect]
     Active Substance: FOLIC ACID
     Dosage: MATERNAL DOSE: 5.0 MILLIGRAM
     Route: 064
  59. FOLIC ACID [Suspect]
     Active Substance: FOLIC ACID
     Dosage: MATERNAL DOSE: 25.0 MILLIGRAM
     Route: 064
  60. FOLIC ACID [Suspect]
     Active Substance: FOLIC ACID
     Dosage: MATERNAL DOSE: UNKNOWN
     Route: 064
  61. FOLIC ACID [Suspect]
     Active Substance: FOLIC ACID
     Dosage: MATERNAL DOSE: 5.0 MILLIGRAM
     Route: 064
  62. FOLIC ACID [Suspect]
     Active Substance: FOLIC ACID
     Dosage: MATERNAL DOSE: 1.0 MILLIGRAM
     Route: 064
  63. FOLIC ACID [Suspect]
     Active Substance: FOLIC ACID
     Dosage: MATERNAL DOSE: UNKNOWN
     Route: 064
  64. FOLIC ACID [Suspect]
     Active Substance: FOLIC ACID
     Dosage: MATERNAL DOSE: 5.0 MILLIGRAM
     Route: 064
  65. FOLIC ACID [Suspect]
     Active Substance: FOLIC ACID
     Dosage: MATERNAL DOSE: 5.0 MILLIGRAM
     Route: 064
  66. FOLIC ACID [Suspect]
     Active Substance: FOLIC ACID
     Dosage: MATERNAL DOSE: 25.0 MILLIGRAM
     Route: 064
  67. FOLIC ACID [Suspect]
     Active Substance: FOLIC ACID
     Dosage: MATERNAL DOSE: UNKNOWN
     Route: 064
  68. FOLIC ACID [Suspect]
     Active Substance: FOLIC ACID
     Dosage: MATERNAL DOSE:0.5 MG
     Route: 064
  69. ENBREL [Suspect]
     Active Substance: ETANERCEPT
     Indication: Foetal exposure during pregnancy
     Dosage: UNK (MATERNAL DOSE: 50.0 MILLIGRAM)
     Route: 064
  70. LEFLUNOMIDE [Suspect]
     Active Substance: LEFLUNOMIDE
     Indication: Foetal exposure during pregnancy
     Dosage: UNK (MATERNAL DOSE: UNKNOWN)
     Route: 064
  71. LEFLUNOMIDE [Suspect]
     Active Substance: LEFLUNOMIDE
     Dosage: MATERNAL DOSE: 20 MG
     Route: 064
  72. RITUXIMAB [Suspect]
     Active Substance: RITUXIMAB
     Indication: Foetal exposure during pregnancy
     Dosage: UNK (MATERNAL DOSE: UNKNOWN)
     Route: 064
  73. RITUXIMAB [Suspect]
     Active Substance: RITUXIMAB
     Indication: Product used for unknown indication
     Dosage: UNK (MATERNAL DOSE: UNKNOWN)
     Route: 064
  74. RITUXIMAB [Suspect]
     Active Substance: RITUXIMAB
     Dosage: UNK (MATERNAL DOSE: UNKNOWN)
     Route: 064
  75. RITUXIMAB [Suspect]
     Active Substance: RITUXIMAB
     Dosage: UNK (MATERNAL DOSE: UNKNOWN)UNK
     Route: 064
  76. RITUXIMAB [Suspect]
     Active Substance: RITUXIMAB
     Dosage: MATERNAL DOSE: UNKNOWN
     Route: 064
  77. RITUXIMAB [Suspect]
     Active Substance: RITUXIMAB
     Dosage: MATERNAL DOSE: UNKNOWN
     Route: 064
  78. RITUXIMAB [Suspect]
     Active Substance: RITUXIMAB
     Dosage: MATERNAL DOSE: UNKNOWN
     Route: 064
  79. RITUXIMAB [Suspect]
     Active Substance: RITUXIMAB
     Dosage: MATERNAL DOSE: UNKNOWN
     Route: 064
  80. FOSAMAX [Suspect]
     Active Substance: ALENDRONATE SODIUM
     Indication: Foetal exposure during pregnancy
     Dosage: UNK (MATERNAL DOSE: UNKNOWN)
     Route: 064
  81. FOSAMAX [Suspect]
     Active Substance: ALENDRONATE SODIUM
     Dosage: MATERNAL DOSE: UNKNOWN
     Route: 064
  82. FOSAMAX [Suspect]
     Active Substance: ALENDRONATE SODIUM
     Dosage: MATERNAL DOSE: UNKNOWN
     Route: 064
  83. FOSAMAX [Suspect]
     Active Substance: ALENDRONATE SODIUM
     Dosage: MATERNAL DOSE: UNKNOWN
     Route: 064
  84. FOSAMAX [Suspect]
     Active Substance: ALENDRONATE SODIUM
     Dosage: MATERNAL DOSE: UNKNOWN
     Route: 064
  85. HUMIRA [Suspect]
     Active Substance: ADALIMUMAB
     Indication: Foetal exposure during pregnancy
     Dosage: UNK (MATERNAL DOSE: 4.0 MILLIGRAM)
     Route: 064
  86. HUMIRA [Suspect]
     Active Substance: ADALIMUMAB
     Dosage: UNK (MATERNAL DOSE: 40.0 MILLIGRAM, SOLUTION)
     Route: 064
  87. HUMIRA [Suspect]
     Active Substance: ADALIMUMAB
     Dosage: MATERNAL DOSE: 4.0 MILLIGRAM
     Route: 064
  88. HUMIRA [Suspect]
     Active Substance: ADALIMUMAB
     Dosage: MATERNAL DOSE: 400.0 MILLIGRAM, QW, SOLUTION
     Route: 064
  89. HUMIRA [Suspect]
     Active Substance: ADALIMUMAB
     Dosage: MATERNAL DOSE: 40.0 MILLIGRAM
     Route: 064
  90. HUMIRA [Suspect]
     Active Substance: ADALIMUMAB
     Dosage: MATERNAL DOSE: 40.0 MILLIGRAM
     Route: 064
  91. HUMIRA [Suspect]
     Active Substance: ADALIMUMAB
     Dosage: MATERNAL DOSE: UNKNOWN
     Route: 064
  92. ORENCIA [Suspect]
     Active Substance: ABATACEPT
     Indication: Foetal exposure during pregnancy
     Dosage: UNK (MATERNAL DOSE: UNKNOWN)
     Route: 064
  93. ORENCIA [Suspect]
     Active Substance: ABATACEPT
     Dosage: UNK (MATERNAL DOSE: UNKNOWN)
     Route: 064
  94. ORENCIA [Suspect]
     Active Substance: ABATACEPT
     Dosage: UNK (MATERNAL DOSE: UNKNOWN)
     Route: 064
  95. METHOTREXATE [Suspect]
     Active Substance: METHOTREXATE
     Indication: Foetal exposure during pregnancy
     Dosage: UNK(MATERNAL DOSE: 25.0 MILLIGRAM)
     Route: 064
  96. METHOTREXATE [Suspect]
     Active Substance: METHOTREXATE
     Dosage: UNK (MATERNAL DOSE: 25.0 MILLIGRAM)
     Route: 064
  97. METHOTREXATE [Suspect]
     Active Substance: METHOTREXATE
     Dosage: UNK (MATERNAL DOSE: UNKNOWN)
     Route: 064
  98. METHOTREXATE [Suspect]
     Active Substance: METHOTREXATE
     Dosage: MATERNAL DOSE: 20.0 MILLIGRAM
     Route: 064
  99. METHOTREXATE [Suspect]
     Active Substance: METHOTREXATE
     Dosage: UNK(MATERNAL DOSE: 25.0 MILLIGRAM)
     Route: 064
  100. METHOTREXATE [Suspect]
     Active Substance: METHOTREXATE
     Dosage: MATERNAL DOSE: 25.0 MILLIGRAM
     Route: 064
  101. METHOTREXATE [Suspect]
     Active Substance: METHOTREXATE
     Dosage: MATERNAL DOSE: 25.0 MILLIGRAM
     Route: 064
  102. METHOTREXATE [Suspect]
     Active Substance: METHOTREXATE
     Dosage: MATERNAL DOSE: 20.0 MILLIGRAM, QD
     Route: 064
  103. METHOTREXATE [Suspect]
     Active Substance: METHOTREXATE
     Dosage: MATERNAL DOSE:  25.0 MILLIGRAM
     Route: 064
  104. METHOTREXATE [Suspect]
     Active Substance: METHOTREXATE
     Dosage: MATERNAL DOSE: 25.0 MILLIGRAM, QW
     Route: 064
  105. METHOTREXATE [Suspect]
     Active Substance: METHOTREXATE
     Dosage: MATERNAL DOSE:  25.0 MILLIGRAM
     Route: 064
  106. METHOTREXATE [Suspect]
     Active Substance: METHOTREXATE
     Dosage: MATERNAL DOSE:  25.0 MILLIGRAM
     Route: 064
  107. METHOTREXATE [Suspect]
     Active Substance: METHOTREXATE
     Dosage: MATERNAL DOSE:  25.0 MILLIGRAM
     Route: 064
  108. METHOTREXATE [Suspect]
     Active Substance: METHOTREXATE
     Dosage: MATERNAL DOSE:  25.0 MILLIGRAM
     Route: 064
  109. METHOTREXATE [Suspect]
     Active Substance: METHOTREXATE
     Dosage: MATERNAL DOSE: 20.0 MILLIGRAM
     Route: 064
  110. METHOTREXATE [Suspect]
     Active Substance: METHOTREXATE
     Dosage: MATERNAL DOSE: 20.0 MILLIGRAM
     Route: 064
  111. OTEZLA [Suspect]
     Active Substance: APREMILAST
     Indication: Foetal exposure during pregnancy
     Dosage: UNK (MATERNAL DOSE: UNKNOWN)
     Route: 064
  112. OTEZLA [Suspect]
     Active Substance: APREMILAST
     Dosage: UNK (MATERNAL DOSE: 3.0 MILLIGRAM 2 EVERY 1 DAYS)
     Route: 064
  113. OTEZLA [Suspect]
     Active Substance: APREMILAST
     Dosage: UNK (MATERNAL DOSE: UNKNOWN)
     Route: 064
  114. OTEZLA [Suspect]
     Active Substance: APREMILAST
     Dosage: UNK (MATERNAL DOSE: 3.0 MILLIGRAM 2 EVERY 1 DAYS)
     Route: 064
  115. REMICADE [Suspect]
     Active Substance: INFLIXIMAB
     Indication: Foetal exposure during pregnancy
     Dosage: UNK (MATERNAL DOSE: UNKNOWN)
     Route: 064
  116. REMICADE [Suspect]
     Active Substance: INFLIXIMAB
     Dosage: UNK (MATERNAL DOSE: UNKNOWN, SOLUTION FOR INFUSION)
     Route: 064
  117. REMICADE [Suspect]
     Active Substance: INFLIXIMAB
     Dosage: UNK (MATERNAL DOSE: UNKNOWN, SOLUTION FOR INFUSION)
     Route: 064
  118. REMICADE [Suspect]
     Active Substance: INFLIXIMAB
     Dosage: UNK (MATERNAL DOSE: UNKNOWN, POWDER FOR INJECTION)
     Route: 064
  119. REMICADE [Suspect]
     Active Substance: INFLIXIMAB
     Dosage: MATERNAL DOSE: 400.0 MILLIGRAM
     Route: 064
  120. REMICADE [Suspect]
     Active Substance: INFLIXIMAB
     Dosage: MATERNAL DOSE: UNKNOWN, SOLUTION FOR INFUSION
     Route: 064
  121. REMICADE [Suspect]
     Active Substance: INFLIXIMAB
     Dosage: MATERNAL DOSE: UNKNOWN, POWDER FOR INJECTION
     Route: 064
  122. REMICADE [Suspect]
     Active Substance: INFLIXIMAB
     Dosage: MATERNAL DOSE: 300.0 MILLIGRAM
     Route: 064
  123. CORTISONE ACETATE [Suspect]
     Active Substance: CORTISONE ACETATE
     Indication: Foetal exposure during pregnancy
     Dosage: MATERNAL DOSE: UNKNOWN, TABLET
     Route: 064
  124. CORTISONE ACETATE [Suspect]
     Active Substance: CORTISONE ACETATE
     Dosage: MATERNAL DOSE: 25.0 MILLIGRAM, TABLETS
     Route: 064
  125. CORTISONE ACETATE [Suspect]
     Active Substance: CORTISONE ACETATE
     Dosage: MATERNAL DOSE: 25.0 MILLIGRAM, OINTMENT
     Route: 064
  126. CORTISONE ACETATE [Suspect]
     Active Substance: CORTISONE ACETATE
     Dosage: MATERNAL DOSE: UNKNOWN
     Route: 064
  127. CORTISONE ACETATE [Suspect]
     Active Substance: CORTISONE ACETATE
     Dosage: MATERNAL DOSE: 25.0 MILLIGRAM
     Route: 064
  128. CORTISONE ACETATE [Suspect]
     Active Substance: CORTISONE ACETATE
     Dosage: MATERNAL DOSE: 25.0 MILLIGRAM
     Route: 064
  129. CORTISONE ACETATE [Suspect]
     Active Substance: CORTISONE ACETATE
     Dosage: MATERNAL EXPOSURE:25.0 MG
     Route: 064
  130. CORTISONE ACETATE [Suspect]
     Active Substance: CORTISONE ACETATE
     Dosage: MATERNAL EXPOSURE:25.0 MG
     Route: 064
  131. CORTISONE ACETATE [Suspect]
     Active Substance: CORTISONE ACETATE
     Dosage: MATERNAL EXPOSURE:25.0 MG
     Route: 064
  132. SIMPONI [Suspect]
     Active Substance: GOLIMUMAB
     Indication: Foetal exposure during pregnancy
     Dosage: UNK (MATERNAL DOSE: 50.0 MILLIGRAM)
     Route: 064
  133. SIMPONI [Suspect]
     Active Substance: GOLIMUMAB
     Dosage: UNK (MATERNAL DOSE: UNKNOWN)
     Route: 064
  134. SIMPONI [Suspect]
     Active Substance: GOLIMUMAB
     Dosage: MATERNAL DOSE: UNKNOWN
     Route: 064
  135. SIMPONI [Suspect]
     Active Substance: GOLIMUMAB
     Dosage: MATERNAL DOSE: UNKNOWN
     Route: 064
  136. SOLU-MEDROL [Suspect]
     Active Substance: METHYLPREDNISOLONE SODIUM SUCCINATE
     Indication: Foetal exposure during pregnancy
     Dosage: UNK (MATERNAL DOSE: UNKNOWN)
     Route: 064
  137. STELARA [Suspect]
     Active Substance: USTEKINUMAB
     Indication: Foetal exposure during pregnancy
     Dosage: UNK (MATERNAL DOSE: UNKNOWN, SOLUTION)
     Route: 064
  138. STELARA [Suspect]
     Active Substance: USTEKINUMAB
     Dosage: MATERNAL DOSE: UNKNOWN, SOLUTION
     Route: 064
  139. HYDROXYCHLOROQUINE [Suspect]
     Active Substance: HYDROXYCHLOROQUINE
     Indication: Foetal exposure during pregnancy
     Dosage: UNK (MATERNAL DOSE: 400.0 MILLIGRAM, QD)
     Route: 064
  140. HYDROXYCHLOROQUINE [Suspect]
     Active Substance: HYDROXYCHLOROQUINE
     Dosage: UNK (MATERNAL DOSE: 400.0 MILLIGRAM, QD)
     Route: 064
  141. HYDROXYCHLOROQUINE [Suspect]
     Active Substance: HYDROXYCHLOROQUINE
     Dosage: UNK (MATERNAL DOSE: 400.0 MILLIGRAM, QD)
     Route: 064
  142. HYDROXYCHLOROQUINE [Suspect]
     Active Substance: HYDROXYCHLOROQUINE
     Dosage: UNK (MATERNAL DOSE: UNKNOWN)
     Route: 064
  143. HYDROXYCHLOROQUINE [Suspect]
     Active Substance: HYDROXYCHLOROQUINE
     Dosage: UNK (MATERNAL DOSE: 400.0 MILLIGRAM)
     Route: 064
  144. HYDROXYCHLOROQUINE [Suspect]
     Active Substance: HYDROXYCHLOROQUINE
     Dosage: UNK (MATERNAL DOSE: 400.0 MILLIGRAM, QD)
     Route: 064
  145. HYDROXYCHLOROQUINE [Suspect]
     Active Substance: HYDROXYCHLOROQUINE
     Dosage: UNK (MATERNAL DOSE: 400.0 MILLIGRAM, QD)
     Route: 064
  146. HYDROXYCHLOROQUINE [Suspect]
     Active Substance: HYDROXYCHLOROQUINE
     Dosage: UNK (MATERNAL DOSE: 400.0 MILLIGRAM)
     Route: 064
  147. HYDROXYCHLOROQUINE [Suspect]
     Active Substance: HYDROXYCHLOROQUINE
     Dosage: MATERNAL DOSE: 400.0 MILLIGRAM,
     Route: 064
  148. HYDROXYCHLOROQUINE [Suspect]
     Active Substance: HYDROXYCHLOROQUINE
     Dosage: MATERNAL DOSE:UNKNOWN
     Route: 064
  149. HYDROXYCHLOROQUINE [Suspect]
     Active Substance: HYDROXYCHLOROQUINE
     Dosage: MATERNAL DOSE: UNKNOWN
     Route: 064
  150. HYDROXYCHLOROQUINE [Suspect]
     Active Substance: HYDROXYCHLOROQUINE
     Dosage: MATERNAL DOSE: UNKNOWN
     Route: 064
  151. XELJANZ [Suspect]
     Active Substance: TOFACITINIB CITRATE
     Indication: Foetal exposure during pregnancy
     Dosage: UNK (MATERNAL DOSE: 5.0 MILLIGRAM)
     Route: 064
  152. XELJANZ [Suspect]
     Active Substance: TOFACITINIB CITRATE
     Dosage: UNK (MATERNAL DOSE: UNKNOWN)
     Route: 064
  153. XELJANZ [Suspect]
     Active Substance: TOFACITINIB CITRATE
     Dosage: MATERNAL DOSE: 5.0 MILLIGRAM
     Route: 064
  154. XELJANZ [Suspect]
     Active Substance: TOFACITINIB CITRATE
     Dosage: MATERNAL DOSE: UNKNOWN
     Route: 064
  155. XELJANZ [Suspect]
     Active Substance: TOFACITINIB CITRATE
     Dosage: MATERNAL DOSE: UNKNOWN
     Route: 064
  156. PREDNISONE [Suspect]
     Active Substance: PREDNISONE
     Indication: Foetal exposure during pregnancy
     Dosage: UNK (MATERNAL DOSE: 40.0 MILLIGRAM)
     Route: 064
  157. PREDNISONE [Suspect]
     Active Substance: PREDNISONE
     Dosage: UNK (MATERNAL DOSE: 25.0 MILLIGRAM)
     Route: 064
  158. PREDNISONE [Suspect]
     Active Substance: PREDNISONE
     Dosage: UNK (MATERNAL DOSE: UNKNOWN)
     Route: 064
  159. PREDNISONE [Suspect]
     Active Substance: PREDNISONE
     Dosage: UNK (MATERNAL DOSE: UNKNOWN)
     Route: 064
  160. PREDNISONE [Suspect]
     Active Substance: PREDNISONE
     Dosage: MATERNAL DOSE: 40.0 MILLIGRAM
     Route: 064
  161. PREDNISONE [Suspect]
     Active Substance: PREDNISONE
     Dosage: MATERNAL DOSE: 25.0 MILLIGRAM
     Route: 064
  162. PREDNISONE [Suspect]
     Active Substance: PREDNISONE
     Dosage: MATERNAL DOSE: UNKNOWN
     Route: 064
  163. PREDNISONE [Suspect]
     Active Substance: PREDNISONE
     Indication: Foetal exposure during pregnancy
     Dosage: MATERNAL DOSE: UNKNOWN
     Route: 064
  164. SULFASALAZINE [Suspect]
     Active Substance: SULFASALAZINE
     Indication: Foetal exposure during pregnancy
     Dosage: UNK (MATERNAL DOSE: 1000.0 MILLIGRA)
     Route: 064
  165. SULFASALAZINE [Suspect]
     Active Substance: SULFASALAZINE
     Dosage: UNK (MATERNAL DOSE: 500.0 MILLIGRAM)
     Route: 064
  166. SULFASALAZINE [Suspect]
     Active Substance: SULFASALAZINE
     Dosage: UNK (MATERNAL DOSE: 500.0 MILLIGRAM)
     Route: 064
  167. SULFASALAZINE [Suspect]
     Active Substance: SULFASALAZINE
     Dosage: UNK (MATERNAL DOSE: 1000.0 MILLIGRA)
     Route: 064
  168. SULFASALAZINE [Suspect]
     Active Substance: SULFASALAZINE
     Dosage: UNK (MATERNAL DOSE: 1000.0 MILLIGRA)
     Route: 064
  169. SULFASALAZINE [Suspect]
     Active Substance: SULFASALAZINE
     Dosage: MATERNAL DOSE: 1000.0 MILLIGRAM, (TID)
     Route: 064
  170. SULFASALAZINE [Suspect]
     Active Substance: SULFASALAZINE
     Dosage: MATERNAL DOSE: 500.0 MILLIGRAM
     Route: 064
  171. SULFASALAZINE [Suspect]
     Active Substance: SULFASALAZINE
     Dosage: MATERNAL DOSE: 500.0 MILLIGRAM
     Route: 064
  172. SULFASALAZINE [Suspect]
     Active Substance: SULFASALAZINE
     Dosage: MATERNAL DOSE: 1000.0 MILLIGRAM QD
     Route: 064
  173. SULFASALAZINE [Suspect]
     Active Substance: SULFASALAZINE
     Dosage: MATERNAL DOSE: UNKNOWN
     Route: 064
  174. SULFASALAZINE [Suspect]
     Active Substance: SULFASALAZINE
     Dosage: MATERNAL DOSE: UNKNOWN
     Route: 064
  175. SULFASALAZINE [Suspect]
     Active Substance: SULFASALAZINE
     Dosage: MATERNAL DOSE: 1000.0 MILLIGRAM
     Route: 064
  176. SULFASALAZINE [Suspect]
     Active Substance: SULFASALAZINE
     Dosage: MATERNAL DOSE: 100.0 MILLIGRAM, (TID)
     Route: 064
  177. SULFASALAZINE [Suspect]
     Active Substance: SULFASALAZINE
     Dosage: MATERNAL DOSE: 2.0 GRAM, (TID)
     Route: 064
  178. VITAMIN D3 [Suspect]
     Active Substance: CHOLECALCIFEROL
     Indication: Foetal exposure during pregnancy
     Dosage: UNK (MATERNAL DOSE: UNKNOWN)
     Route: 064
  179. VITAMIN D3 [Suspect]
     Active Substance: CHOLECALCIFEROL
     Dosage: MATERNAL DOSE: UNKNOWN
     Route: 064
  180. VITAMIN D3 [Suspect]
     Active Substance: CHOLECALCIFEROL
     Dosage: MATERNAL DOSE: UNKNOWN
     Route: 064
  181. SULFASALAZINE [Concomitant]
     Active Substance: SULFASALAZINE
     Indication: Foetal exposure during pregnancy
     Dosage: UNK (MATERNAL DOSE: UNKNOWN)
     Route: 064
  182. SULFASALAZINE [Concomitant]
     Active Substance: SULFASALAZINE
     Dosage: MATERNAL DOSE: 1.0G
     Route: 064
  183. GOLIMUMAB [Suspect]
     Active Substance: GOLIMUMAB
     Indication: Foetal exposure during pregnancy
     Dosage: UNK (MATERNAL DOSE: UNKNOWN)
     Route: 064
  184. GOLIMUMAB [Suspect]
     Active Substance: GOLIMUMAB
     Dosage: MATERNAL DOSE: UNKNOWN
     Route: 064
  185. PHTHALYLSULFATHIAZOLE [Suspect]
     Active Substance: PHTHALYLSULFATHIAZOLE
     Indication: Foetal exposure during pregnancy
     Dosage: UNK (MATERNAL DOSE: UNKNOWN)
     Route: 064
  186. PHTHALYLSULFATHIAZOLE [Suspect]
     Active Substance: PHTHALYLSULFATHIAZOLE
     Dosage: MATERNAL DOSE: 400 MG
     Route: 064
  187. PHTHALYLSULFATHIAZOLE [Suspect]
     Active Substance: PHTHALYLSULFATHIAZOLE
     Dosage: MATERNAL DOSE: 400 MG
     Route: 064
  188. PHTHALYLSULFATHIAZOLE [Suspect]
     Active Substance: PHTHALYLSULFATHIAZOLE
     Dosage: MATERNAL DOSE: UNKNOWN
     Route: 064
  189. PHTHALYLSULFATHIAZOLE [Suspect]
     Active Substance: PHTHALYLSULFATHIAZOLE
     Dosage: MATERNAL DOSE: UNKNOWN
     Route: 064
  190. PHTHALYLSULFATHIAZOLE [Suspect]
     Active Substance: PHTHALYLSULFATHIAZOLE
     Dosage: MATERNAL DOSE: UNKNOWN
     Route: 064
  191. PHTHALYLSULFATHIAZOLE [Suspect]
     Active Substance: PHTHALYLSULFATHIAZOLE
     Dosage: MATERNAL DOSE: UNKNOWN
     Route: 064
  192. TOCILIZUMAB [Suspect]
     Active Substance: TOCILIZUMAB
     Indication: Foetal exposure during pregnancy
     Dosage: UNK (MATERNAL DOSE: UNKNOWN)
     Route: 064
  193. TOCILIZUMAB [Suspect]
     Active Substance: TOCILIZUMAB
     Dosage: UNK (MATERNAL DOSE: UNKNOWN)
     Route: 064
  194. TOCILIZUMAB [Suspect]
     Active Substance: TOCILIZUMAB
     Dosage: MATERNAL DOSE: UNKNOWN
     Route: 064
  195. DESOXIMETASONE [Suspect]
     Active Substance: DESOXIMETASONE
     Indication: Foetal exposure during pregnancy
     Dosage: MATERNAL DOSE: UNKNOWN
     Route: 064
  196. DESOXIMETASONE [Suspect]
     Active Substance: DESOXIMETASONE
     Dosage: MATERNAL DOSE: UNKNOWN
     Route: 064
  197. DESOXIMETASONE [Suspect]
     Active Substance: DESOXIMETASONE
     Dosage: MATERNAL DOSE: UNKNOWN
     Route: 064
  198. DESOXIMETASONE [Suspect]
     Active Substance: DESOXIMETASONE
     Dosage: MATERNAL DOSE: UNKNOWN
     Route: 064
  199. DESOXIMETASONE [Suspect]
     Active Substance: DESOXIMETASONE
     Dosage: MATERNAL DOSE: UNKNOWN
     Route: 064
  200. DESOXIMETASONE [Suspect]
     Active Substance: DESOXIMETASONE
     Dosage: MATERNAL DOSE: UNKNOWN
     Route: 064
  201. DESOXIMETASONE [Suspect]
     Active Substance: DESOXIMETASONE
     Dosage: MATERNAL DOSE: UNKNOWN
     Route: 064
  202. DESOXIMETASONE [Suspect]
     Active Substance: DESOXIMETASONE
     Dosage: MATERNAL DOSE: UNKNOWN
     Route: 064
  203. DESOXIMETASONE [Suspect]
     Active Substance: DESOXIMETASONE
     Dosage: MATERNAL DOSE: UNKNOWN
     Route: 064
  204. DESOXIMETASONE [Suspect]
     Active Substance: DESOXIMETASONE
     Dosage: MATERNAL DOSE: UNKNOWN
     Route: 064
  205. CERTOLIZUMAB PEGOL [Suspect]
     Active Substance: CERTOLIZUMAB PEGOL
     Indication: Foetal exposure during pregnancy
     Dosage: MATERNAL DOSE: UNKNOWN
     Route: 064
  206. CORTISONE ACETATE [Suspect]
     Active Substance: CORTISONE ACETATE
     Indication: Foetal exposure during pregnancy
     Dosage: MATERNAL EXPOSURE:25.0 MG
     Route: 064
  207. CORTISONE ACETATE [Suspect]
     Active Substance: CORTISONE ACETATE
     Dosage: MATERNAL EXPOSURE:25.0 MG
     Route: 064
  208. CORTISONE ACETATE [Suspect]
     Active Substance: CORTISONE ACETATE
     Dosage: MATERNAL EXPOSURE:25.0 MG
     Route: 064
  209. CALCIUM GLUBIONATE [Suspect]
     Active Substance: CALCIUM GLUBIONATE
     Indication: Foetal exposure during pregnancy
     Dosage: MATERNAL DOSE: UNKNOWN
     Route: 064
  210. TOFACITINIB CITRATE [Concomitant]
     Active Substance: TOFACITINIB CITRATE
     Indication: Foetal exposure during pregnancy
     Dosage: UNK (MATERNAL DOSE: 5.0 MILLIGRAM, 1 EVERY 1 WEEK)
     Route: 064
  211. LISINOPRIL [Concomitant]
     Active Substance: LISINOPRIL
     Indication: Foetal exposure during pregnancy
     Dosage: UNK (MATERNAL DOSE: UNKNOWN)
     Route: 064
  212. IBUPROFEN [Concomitant]
     Active Substance: IBUPROFEN
     Indication: Foetal exposure during pregnancy
     Dosage: UNK (MATERNAL DOSE: UNKNOWN)
     Route: 064
  213. CALCIUM GLUCONATE [Concomitant]
     Active Substance: CALCIUM GLUCONATE
     Indication: Foetal exposure during pregnancy
     Dosage: MATERNAL DOSE: UNKNOWN
     Route: 064
  214. CODEINE [Concomitant]
     Active Substance: CODEINE
     Indication: Foetal exposure during pregnancy
     Dosage: UNK (MATERNAL DOSE: UNKNOWN)
     Route: 064
  215. CAFFEINE CITRATE [Concomitant]
     Active Substance: CAFFEINE CITRATE
     Indication: Foetal exposure during pregnancy
     Dosage: MATERNAL DOSE: UNKNOWN
     Route: 064
  216. DICLOFENAC POTASSIUM [Concomitant]
     Active Substance: DICLOFENAC POTASSIUM
     Indication: Product used for unknown indication
     Dosage: MATERNAL DOSE: UNKNOWN
     Route: 064
  217. DICLOFENAC POTASSIUM [Concomitant]
     Active Substance: DICLOFENAC POTASSIUM
     Indication: Foetal exposure during pregnancy
  218. PANTOPRAZOLE [Concomitant]
     Active Substance: PANTOPRAZOLE
     Indication: Foetal exposure during pregnancy
     Dosage: MATERNAL DOSE: UNKNOWN
     Route: 064
  219. QUETIAPINE FUMARATE [Concomitant]
     Active Substance: QUETIAPINE FUMARATE
     Indication: Foetal exposure during pregnancy
     Dosage: MATERNAL DOSE: UNKNOWN
     Route: 064
  220. RAMIPRIL [Concomitant]
     Active Substance: RAMIPRIL
     Indication: Foetal exposure during pregnancy
     Dosage: MATERNAL DOSE: UNKNOWN
     Route: 064
  221. HYDROXYCHLOROQUINE SULFATE [Suspect]
     Active Substance: HYDROXYCHLOROQUINE SULFATE
     Indication: Foetal exposure during pregnancy
     Dosage: MATERNAL DOSE: 400 MG
     Route: 064
  222. HYDROXYCHLOROQUINE SULFATE [Suspect]
     Active Substance: HYDROXYCHLOROQUINE SULFATE
     Dosage: MATERNAL DOSE: 400 MG
     Route: 064
  223. HYDROXYCHLOROQUINE SULFATE [Suspect]
     Active Substance: HYDROXYCHLOROQUINE SULFATE
     Dosage: MATERNAL DOSE: UNKNOWN
     Route: 064

REACTIONS (1)
  - Death neonatal [Fatal]
